FAERS Safety Report 9477737 (Version 1)
Quarter: 2013Q3

REPORT INFORMATION
  Report Type: Spontaneous
  Country: GB (occurrence: GB)
  Receive Date: 20130827
  Receipt Date: 20130827
  Transmission Date: 20140515
  Serious: Yes (Other)
  Sender: FDA-Public Use
  Company Number: GB-ACTELION-A-CH2013-87529

PATIENT
  Age: 46 Year
  Sex: Female
  Weight: 108 kg

DRUGS (13)
  1. ZAVESCA [Suspect]
     Indication: NIEMANN-PICK DISEASE
     Dosage: 300 MG, OD
     Route: 048
     Dates: end: 20130503
  2. ZAVESCA [Suspect]
     Dosage: 100 MG, BID
     Route: 048
     Dates: start: 20130301
  3. ADCAL D3 [Concomitant]
     Dosage: 1 UNK, UNK
  4. ARNICA [Concomitant]
  5. CITALOPRAM [Concomitant]
     Dosage: 20 MG, QD
  6. CO-CODAMOL [Concomitant]
  7. LOPERAMIDE [Concomitant]
     Dosage: 2 MG, UNK
  8. LORATADIN [Concomitant]
     Dosage: 10 MG, QD
  9. PIRACETAM [Concomitant]
     Dosage: 1600 MG, QID
  10. SALBUTAMOL [Concomitant]
  11. SODIUM VALPROATE [Concomitant]
     Dosage: 500 MG, TID
  12. VITAMIN C [Concomitant]
     Dosage: 1 UNK, UNK
  13. YEAST [Concomitant]
     Dosage: 1 UNK, UNK

REACTIONS (2)
  - Tremor [Recovered/Resolved]
  - Activities of daily living impaired [Recovered/Resolved]
